FAERS Safety Report 7435879-2 (Version None)
Quarter: 2011Q2

REPORT INFORMATION
  Report Type: 
  Country: None (occurrence: None)
  Receive Date: 20110418
  Receipt Date: 20110405
  Transmission Date: 20111010
  Serious: Yes (Other)
  Sender: FDA-Public Use
  Company Number: JPI-P-014480

PATIENT
  Age: 30 Year
  Sex: Female
  Weight: 120.6568 kg

DRUGS (9)
  1. XYREM [Suspect]
     Indication: SOMNOLENCE
     Dosage: (2 IN 1 D),ORAL ; 7 GM (3.5 GM,2 IN 1 D),ORAL
     Route: 048
     Dates: start: 20071112
  2. XYREM [Suspect]
     Indication: NARCOLEPSY
     Dosage: (2 IN 1 D),ORAL ; 7 GM (3.5 GM,2 IN 1 D),ORAL
     Route: 048
     Dates: start: 20071112
  3. XYREM [Suspect]
     Indication: SOMNOLENCE
     Dosage: (2 IN 1 D),ORAL ; 7 GM (3.5 GM,2 IN 1 D),ORAL
     Route: 048
     Dates: end: 20110401
  4. XYREM [Suspect]
     Indication: NARCOLEPSY
     Dosage: (2 IN 1 D),ORAL ; 7 GM (3.5 GM,2 IN 1 D),ORAL
     Route: 048
     Dates: end: 20110401
  5. LORATADINE [Concomitant]
  6. FLUTICASONE PROPIONATE [Concomitant]
  7. ALBUTEROL [Concomitant]
  8. OMEPRAZOLE [Concomitant]
  9. CITALOPRAM [Concomitant]

REACTIONS (4)
  - HIATUS HERNIA [None]
  - EROSIVE OESOPHAGITIS [None]
  - PNEUMONIA [None]
  - GASTROOESOPHAGEAL SPHINCTER INSUFFICIENCY [None]
